FAERS Safety Report 5060206-8 (Version None)
Quarter: 2006Q3

REPORT INFORMATION
  Report Type: 
  Country: None (occurrence: None)
  Receive Date: 20060720
  Receipt Date: 20060706
  Transmission Date: 20061208
  Serious: Yes (Hospitalization)
  Sender: FDA-Public Use
  Company Number: MEDI-0004737

PATIENT
  Age: 11 Month
  Sex: 0

DRUGS (1)
  1. SYNAGIS [Suspect]
     Indication: ANTIVIRAL PROPHYLAXIS
     Dosage: 120 MG, INTRAMUSCULAR
     Route: 030
     Dates: start: 20051007, end: 20060131

REACTIONS (1)
  - BRONCHITIS [None]
